FAERS Safety Report 9751283 (Version 1)
Quarter: 2013Q4

REPORT INFORMATION
  Report Type: Spontaneous
  Country: US (occurrence: US)
  Receive Date: 20131212
  Receipt Date: 20131212
  Transmission Date: 20140711
  Serious: No
  Sender: FDA-Public Use
  Company Number: US-BIOGENIDEC-2013BI095491

PATIENT
  Age: 66 Year
  Sex: Female

DRUGS (4)
  1. TECFIDERA [Suspect]
     Indication: MULTIPLE SCLEROSIS
     Route: 048
     Dates: start: 20130730
  2. PRILOSEC [Concomitant]
  3. ASPIRIN CHILDRENS [Concomitant]
  4. METRONIDAZOLE [Concomitant]

REACTIONS (2)
  - Blood pressure increased [Unknown]
  - Chest pain [Unknown]
